FAERS Safety Report 8443201-8 (Version None)
Quarter: 2012Q2

REPORT INFORMATION
  Report Type: 
  Country: None (occurrence: None)
  Receive Date: 20120617
  Receipt Date: 20120613
  Transmission Date: 20120825
  Serious: No
  Sender: FDA-Public Use
  Company Number: US-TEVA-343064USA

PATIENT
  Sex: Female
  Weight: 43.584 kg

DRUGS (2)
  1. AZILECT [Suspect]
     Indication: PARKINSON'S DISEASE
     Dosage: 1 MILLIGRAM;
     Route: 048
     Dates: start: 20120502, end: 20120613
  2. SINEMET [Concomitant]
     Indication: PARKINSON'S DISEASE
     Dosage: 25/100MG
     Route: 048

REACTIONS (4)
  - TREMOR [None]
  - MUSCULOSKELETAL STIFFNESS [None]
  - NAUSEA [None]
  - HEADACHE [None]
